FAERS Safety Report 7999339-2 (Version None)
Quarter: 2011Q4

REPORT INFORMATION
  Report Type: 
  Country: None (occurrence: None)
  Receive Date: 20111221
  Receipt Date: 20111208
  Transmission Date: 20120403
  Serious: Yes (Other)
  Sender: FDA-Public Use
  Company Number: JP-PFIZER INC-2011212420

PATIENT
  Age: 73 Year
  Sex: Male
  Weight: 75 kg

DRUGS (9)
  1. CELECOXIB [Suspect]
     Indication: OSTEOARTHRITIS
     Dosage: 100 MG, 2X/DAY
     Route: 048
     Dates: start: 20091126, end: 20110111
  2. SELBEX [Concomitant]
     Indication: GASTRITIS
     Dosage: UNK
     Dates: start: 20040405
  3. CONIEL [Concomitant]
     Dosage: UNK
     Dates: start: 20040114
  4. OPALMON [Concomitant]
     Indication: LUMBAR SPINAL STENOSIS
     Dosage: UNK
     Dates: start: 20050916
  5. BUP-4 [Concomitant]
     Indication: NEUROGENIC BLADDER
     Dosage: UNK
     Dates: start: 20101227
  6. NIZATIDINE [Concomitant]
     Indication: GASTRITIS
     Dosage: UNK
     Dates: start: 20040405
  7. LOSARTAN POTASSIUM [Concomitant]
     Indication: HYPERTENSION
     Dosage: UNK
     Dates: start: 20040114, end: 20101215
  8. HYDROCHLOROTHIAZIDE [Concomitant]
     Indication: HYPERTENSION
     Dosage: UNK
     Dates: start: 20101215
  9. ALLOPURINOL [Concomitant]
     Indication: HYPERURICAEMIA
     Dosage: UNK
     Dates: start: 20040405

REACTIONS (2)
  - NEUROGENIC BLADDER [None]
  - CARDIAC FAILURE [None]
